FAERS Safety Report 5699044-1 (Version None)
Quarter: 2008Q2

REPORT INFORMATION
  Report Type: 
  Country: None (occurrence: None)
  Receive Date: 20080408
  Receipt Date: 20061003
  Transmission Date: 20081010
  Serious: No
  Sender: FDA-Public Use
  Company Number: US-BAYER-US-2006-029815

PATIENT
  Age: 61 Year
  Sex: Male
  Weight: 58 kg

DRUGS (4)
  1. ULTRAVIST 300 [Suspect]
     Indication: COMPUTERISED TOMOGRAM ABDOMEN
     Dosage: UNIT DOSE: 130 ML
     Route: 042
     Dates: start: 20061003, end: 20061003
  2. PREDNISONE [Concomitant]
     Indication: PREMEDICATION
  3. PREDNISONE [Concomitant]
  4. PREDNISONE [Concomitant]

REACTIONS (1)
  - URTICARIA [None]
